FAERS Safety Report 20568013 (Version 1)
Quarter: 2022Q1

REPORT INFORMATION
  Report Type: Spontaneous
  Country: NL (occurrence: NL)
  Receive Date: 20220308
  Receipt Date: 20220308
  Transmission Date: 20220423
  Serious: Yes (Hospitalization, Other)
  Sender: FDA-Public Use
  Company Number: None

PATIENT
  Sex: Female
  Weight: 83 kg

DRUGS (6)
  1. ABILIFY [Interacting]
     Active Substance: ARIPIPRAZOLE
     Indication: Product used for unknown indication
     Dosage: 10 MG
     Route: 065
  2. RIVAROXABAN [Interacting]
     Active Substance: RIVAROXABAN
     Indication: Pulmonary embolism
     Dosage: 15 MG, BID
     Route: 065
     Dates: start: 20220214, end: 20220217
  3. AMLODIPINE [Concomitant]
     Active Substance: AMLODIPINE BESYLATE
     Indication: Product used for unknown indication
     Dosage: UNK
     Route: 065
  4. ACETAMINOPHEN [Concomitant]
     Active Substance: ACETAMINOPHEN
     Indication: Product used for unknown indication
     Dosage: UNK
     Route: 065
  5. DEXAMETHASONE [Concomitant]
     Active Substance: DEXAMETHASONE
     Indication: Product used for unknown indication
     Dosage: 4 MG
     Route: 065
  6. PANTOPRAZOLE [Concomitant]
     Active Substance: PANTOPRAZOLE
     Indication: Product used for unknown indication
     Dosage: UNK
     Route: 065

REACTIONS (5)
  - Intra-abdominal haemorrhage [Unknown]
  - Haemorrhage [Unknown]
  - Hypovolaemic shock [Unknown]
  - Anaemia [Unknown]
  - Drug interaction [Unknown]
